FAERS Safety Report 6152873-2 (Version None)
Quarter: 2009Q2

REPORT INFORMATION
  Report Type: 
  Country: None (occurrence: None)
  Receive Date: 20090413
  Receipt Date: 20090403
  Transmission Date: 20091009
  Serious: Yes (Other)
  Sender: FDA-Public Use
  Company Number: PHHY2009DE04703

PATIENT

DRUGS (7)
  1. RASILEZ [Suspect]
     Indication: HYPERTENSION
     Dosage: 300 MG, QD
     Route: 048
     Dates: start: 20080101
  2. BLOPRESS [Concomitant]
     Indication: HYPERTENSION
     Dosage: 32 MG
     Route: 048
  3. DIGOXIN [Concomitant]
     Route: 048
  4. FUROSEMIDE [Concomitant]
     Route: 048
  5. FALITHROM [Concomitant]
     Route: 048
  6. INDAPAMIDE [Concomitant]
     Route: 048
  7. PENTALONG [Concomitant]
     Route: 048

REACTIONS (1)
  - MACULAR DEGENERATION [None]
